FAERS Safety Report 18679680 (Version 3)
Quarter: 2021Q1

REPORT INFORMATION
  Report Type: Report from Study
  Country: US (occurrence: US)
  Receive Date: 20201229
  Receipt Date: 20210227
  Transmission Date: 20210419
  Serious: Yes (Other)
  Sender: FDA-Public Use
  Company Number: NVSC2020US340644

PATIENT
  Age: 62 Year
  Sex: Female

DRUGS (1)
  1. COSENTYX [Suspect]
     Active Substance: SECUKINUMAB
     Indication: PSORIATIC ARTHROPATHY
     Route: 058
     Dates: start: 20201221, end: 20201222

REACTIONS (3)
  - Erythema [Unknown]
  - Psoriatic arthropathy [Unknown]
  - Injection site pain [Unknown]

NARRATIVE: CASE EVENT DATE: 20201221
